FAERS Safety Report 4940706-9 (Version None)
Quarter: 2006Q1

REPORT INFORMATION
  Report Type: 
  Country: None (occurrence: None)
  Receive Date: 20060313
  Receipt Date: 20060228
  Transmission Date: 20060701
  Serious: Yes (Other)
  Sender: FDA-Public Use
  Company Number: US-JNJFOC-20031103361

PATIENT

DRUGS (1)
  1. REMICADE [Suspect]
     Route: 042

REACTIONS (1)
  - TUBERCULOSIS [None]
